FAERS Safety Report 15457818 (Version 4)
Quarter: 2019Q1

REPORT INFORMATION
  Report Type: Spontaneous
  Country: US (occurrence: US)
  Receive Date: 20181003
  Receipt Date: 20190318
  Transmission Date: 20190417
  Serious: Yes (Other)
  Sender: FDA-Public Use
  Company Number: US-BRISTOL-MYERS SQUIBB COMPANY-BMS-2018-088620

PATIENT
  Age: 58 Year
  Sex: Female
  Weight: 90.25 kg

DRUGS (1)
  1. ORENCIA [Suspect]
     Active Substance: ABATACEPT
     Indication: RHEUMATOID ARTHRITIS
     Dosage: 750 MG OVER 1 HOUR AT WEEK 0,2 AND 4
     Route: 042
     Dates: start: 201807

REACTIONS (3)
  - Nasopharyngitis [Unknown]
  - Influenza like illness [Unknown]
  - Cardiac disorder [Unknown]

NARRATIVE: CASE EVENT DATE: 20181105
